FAERS Safety Report 13721757 (Version 1)
Quarter: 2017Q3

REPORT INFORMATION
  Report Type: Spontaneous
  Country: US (occurrence: US)
  Receive Date: 20170706
  Receipt Date: 20170706
  Transmission Date: 20171127
  Serious: Yes (Death)
  Sender: FDA-Public Use
  Company Number: None

PATIENT
  Age: 66 Year
  Sex: Female

DRUGS (4)
  1. COLACE [Concomitant]
     Active Substance: DOCUSATE SODIUM
  2. SENNA SMOOTH [Concomitant]
  3. VIOS [Concomitant]
  4. LONSURF [Suspect]
     Active Substance: TIPIRACIL HYDROCHLORIDE\TRIFLURIDINE
     Indication: COLON CANCER
     Dosage: 3 TABS BID BY MOUTH DAYS 1-5 + 8-12
     Route: 048
     Dates: start: 20170608, end: 20170616

REACTIONS (1)
  - Death [None]

NARRATIVE: CASE EVENT DATE: 20170616
